FAERS Safety Report 12100708 (Version 3)
Quarter: 2016Q4

REPORT INFORMATION
  Report Type: Report from Study
  Country: KR (occurrence: KR)
  Receive Date: 20160222
  Receipt Date: 20161026
  Transmission Date: 20170206
  Serious: Yes (Death, Hospitalization, Other)
  Sender: FDA-Public Use
  Company Number: KR-BRISTOL-MYERS SQUIBB COMPANY-BMS-2016-005954

PATIENT
  Age: 86 Year
  Sex: Male
  Weight: 60 kg

DRUGS (9)
  1. APIXABAN [Suspect]
     Active Substance: APIXABAN
     Indication: CEREBROVASCULAR ACCIDENT PROPHYLAXIS
     Dosage: 2.5 MG, BID
     Route: 048
     Dates: start: 20151006, end: 20160125
  2. LIPITOR [Concomitant]
     Active Substance: ATORVASTATIN CALCIUM
     Indication: PRODUCT USED FOR UNKNOWN INDICATION
     Dosage: 10 MG, UNK
     Route: 048
     Dates: start: 20081204, end: 20160107
  3. COLCHICINE. [Concomitant]
     Active Substance: COLCHICINE
     Indication: PRODUCT USED FOR UNKNOWN INDICATION
     Dosage: 0.6 MG, UNK
     Route: 048
     Dates: start: 20130903, end: 20151224
  4. ZYRORIC [Concomitant]
     Indication: PRODUCT USED FOR UNKNOWN INDICATION
     Dosage: 200 MG, UNK
     Route: 048
     Dates: start: 20130903, end: 20160125
  5. STILLEN [Concomitant]
     Indication: PROPHYLAXIS
     Dosage: 180 MG, UNK
     Route: 048
     Dates: start: 20151112, end: 20151118
  6. SEVIKAR HCT [Concomitant]
     Active Substance: AMLODIPINE BESYLATE\HYDROCHLOROTHIAZIDE\OLMESARTAN MEDOXOMIL
     Indication: PRODUCT USED FOR UNKNOWN INDICATION
     Dosage: 1 TAB, UNK
     Route: 048
     Dates: start: 20150401, end: 20160104
  7. ARICEPT EVESS [Concomitant]
     Indication: PRODUCT USED FOR UNKNOWN INDICATION
     Dosage: 10 MG, UNK
     Route: 048
     Dates: start: 201312, end: 20160107
  8. BANAN [Concomitant]
     Active Substance: CEFPODOXIME PROXETIL
     Indication: PROPHYLAXIS
     Dosage: 200 MG, UNK
     Route: 048
     Dates: start: 20151112, end: 20151118
  9. TRAMADOL HYDROCHLORIDE AND ACETAMINOPHEN [Concomitant]
     Active Substance: ACETAMINOPHEN\TRAMADOL HYDROCHLORIDE
     Indication: PRODUCT USED FOR UNKNOWN INDICATION
     Dosage: 1 TAB, UNK
     Route: 048
     Dates: start: 20140113, end: 20160125

REACTIONS (4)
  - Metabolic acidosis [Fatal]
  - Tuberculosis [Unknown]
  - Acute kidney injury [Unknown]
  - Acute myocardial infarction [Fatal]

NARRATIVE: CASE EVENT DATE: 20151116
